FAERS Safety Report 10178304 (Version 3)
Quarter: 2014Q4

REPORT INFORMATION
  Report Type: Report from Study
  Country: CA (occurrence: CA)
  Receive Date: 20140519
  Receipt Date: 20141218
  Transmission Date: 20150528
  Serious: Yes (Other)
  Sender: FDA-Public Use
  Company Number: CA-ROCHE-1356482

PATIENT
  Sex: Female
  Weight: 62.6 kg

DRUGS (12)
  1. ACTEMRA [Suspect]
     Active Substance: TOCILIZUMAB
     Indication: RHEUMATOID ARTHRITIS
     Route: 042
     Dates: start: 20130423, end: 20131018
  2. LEFLUNOMIDE. [Concomitant]
     Active Substance: LEFLUNOMIDE
  3. PREDNISONE. [Concomitant]
     Active Substance: PREDNISONE
  4. ZOFRAN [Concomitant]
     Active Substance: ONDANSETRON HYDROCHLORIDE
  5. COLACE [Concomitant]
     Active Substance: DOCUSATE SODIUM
  6. MELOXICAM. [Concomitant]
     Active Substance: MELOXICAM
  7. LACTULOSE. [Concomitant]
     Active Substance: LACTULOSE
  8. SENOKOT [Concomitant]
     Active Substance: SENNOSIDES
  9. BISACODYL SUPPOSITORY [Concomitant]
     Active Substance: BISACODYL
  10. TYLENOL WITH CODEINE [Concomitant]
     Active Substance: ACETAMINOPHEN\CODEINE PHOSPHATE
  11. HYDROMORPHONE [Concomitant]
     Active Substance: HYDROMORPHONE
  12. GABAPENTIN. [Concomitant]
     Active Substance: GABAPENTIN

REACTIONS (3)
  - Wound [Not Recovered/Not Resolved]
  - Infection [Unknown]
  - Ulcer [Not Recovered/Not Resolved]
